FAERS Safety Report 9450559 (Version 1)
Quarter: 2013Q3

REPORT INFORMATION
  Report Type: Spontaneous
  Country: US (occurrence: US)
  Receive Date: 20130809
  Receipt Date: 20130809
  Transmission Date: 20140515
  Serious: Yes (Other)
  Sender: FDA-Public Use
  Company Number: US-GLAXOSMITHKLINE-A1036815A

PATIENT
  Age: 44 Year
  Sex: Female

DRUGS (11)
  1. SORIATANE [Suspect]
     Indication: PRODUCT USED FOR UNKNOWN INDICATION
     Route: 048
  2. AMLODIPINE [Concomitant]
  3. ASPIRIN [Concomitant]
  4. ESTRADIOL [Concomitant]
  5. GABAPENTIN [Concomitant]
  6. POTASSIUM CHLORIDE [Concomitant]
  7. PRAVASTATIN [Concomitant]
  8. TOPIRAMATE [Concomitant]
  9. SLEEP AID [Concomitant]
  10. ZOCOR [Concomitant]
  11. LAXATIVE [Concomitant]

REACTIONS (2)
  - Hyperthyroidism [Unknown]
  - Alopecia [Unknown]
